FAERS Safety Report 8991945 (Version 1)
Quarter: 2012Q4

REPORT INFORMATION
  Report Type: Report from Study
  Country: DE (occurrence: DE)
  Receive Date: 20121231
  Receipt Date: 20121231
  Transmission Date: 20130627
  Serious: Yes (Hospitalization)
  Sender: FDA-Public Use
  Company Number: DE-ROCHE-1173218

PATIENT
  Age: 18 Year
  Sex: Male
  Weight: 78 kg

DRUGS (6)
  1. TOCILIZUMAB [Suspect]
     Indication: RHEUMATOID ARTHRITIS
     Route: 042
     Dates: start: 20121102
  2. METAMIZOL [Concomitant]
     Route: 048
  3. TRAMADOL [Concomitant]
     Route: 048
  4. LEFLUNOMID [Concomitant]
     Route: 065
  5. ASS [Concomitant]
     Route: 065
  6. L-THYROX [Concomitant]
     Route: 065

REACTIONS (1)
  - Cardiac failure [Recovered/Resolved]
